FAERS Safety Report 5268931-0 (Version None)
Quarter: 2007Q1

REPORT INFORMATION
  Report Type: 
  Country: None (occurrence: None)
  Receive Date: 20061214
  Receipt Date: 20060607
  Transmission Date: 20070707
  Serious: Yes (Hospitalization)
  Sender: FDA-Public Use
  Company Number: 2006072646

PATIENT
  Age: 25 Year

DRUGS (4)
  1. XANAX [Suspect]
     Indication: ILL-DEFINED DISORDER
     Dosage: 2 MG (1 MG, 2 IN 1 D)
  2. WELLBUTRIN XL [Suspect]
     Indication: EX-SMOKER
     Dosage: 150 MG (1 IN 1 D), ORAL
     Route: 048
     Dates: start: 20050101, end: 20050101
  3. CANNABIS (CANNABIS) [Concomitant]
  4. PREVACID [Concomitant]

REACTIONS (1)
  - GRAND MAL CONVULSION [None]
